FAERS Safety Report 14308186 (Version 2)
Quarter: 2017Q4

REPORT INFORMATION
  Report Type: Report from Study
  Country: BR (occurrence: BR)
  Receive Date: 20171220
  Receipt Date: 20171231
  Transmission Date: 20180321
  Serious: Yes (Hospitalization, Other)
  Sender: FDA-Public Use
  Company Number: PHHY2017BR142244

PATIENT
  Sex: Male
  Weight: 53 kg

DRUGS (2)
  1. SANDOSTATIN LAR DEPOT [Suspect]
     Active Substance: OCTREOTIDE ACETATE
     Indication: NEUROENDOCRINE TUMOUR
     Dosage: 30 MG, QMO
     Route: 030
     Dates: start: 20150825, end: 201708
  2. SANDOSTATIN LAR DEPOT [Suspect]
     Active Substance: OCTREOTIDE ACETATE
     Indication: HEPATIC CANCER

REACTIONS (14)
  - Vomiting [Unknown]
  - Metastasis [Unknown]
  - Metastases to bone [Unknown]
  - Hepatitis [Unknown]
  - Disorientation [Unknown]
  - Malignant neoplasm progression [Unknown]
  - Amnesia [Unknown]
  - Asthenia [Unknown]
  - Terminal state [Unknown]
  - Coma [Unknown]
  - Liver disorder [Unknown]
  - Ill-defined disorder [Unknown]
  - Gait disturbance [Unknown]
  - Weight decreased [Unknown]
